FAERS Safety Report 13840364 (Version 1)
Quarter: 2017Q3

REPORT INFORMATION
  Report Type: Spontaneous
  Country: IT (occurrence: IT)
  Receive Date: 20170807
  Receipt Date: 20170807
  Transmission Date: 20171127
  Serious: Yes (Other)
  Sender: FDA-Public Use
  Company Number: IT-GLAXOSMITHKLINE-IT2017GSK120332

PATIENT
  Age: 50 Year
  Sex: Female

DRUGS (1)
  1. ORLISTAT. [Suspect]
     Active Substance: ORLISTAT
     Indication: WEIGHT DECREASED
     Dosage: 1 UNK, QD
     Route: 048
     Dates: start: 20080101, end: 20080401

REACTIONS (4)
  - Loss of consciousness [Unknown]
  - Enzyme inhibition [Unknown]
  - Presyncope [Unknown]
  - Diarrhoea [Unknown]

NARRATIVE: CASE EVENT DATE: 20080101
